FAERS Safety Report 7267415-8 (Version None)
Quarter: 2011Q1

REPORT INFORMATION
  Report Type: 
  Country: None (occurrence: None)
  Receive Date: 20110201
  Receipt Date: 20110121
  Transmission Date: 20110831
  Serious: Yes (Other)
  Sender: FDA-Public Use
  Company Number: US-SANOFI-AVENTIS-2011SA004711

PATIENT
  Age: 79 Year
  Sex: Female

DRUGS (2)
  1. OPTICLICK [Suspect]
     Indication: TYPE 2 DIABETES MELLITUS
     Dates: start: 20060101
  2. LANTUS [Suspect]
     Indication: TYPE 2 DIABETES MELLITUS
     Dosage: 15 UNITS IN AM AND 10-12 UNITS IN PM
     Route: 058

REACTIONS (4)
  - FALL [None]
  - UPPER LIMB FRACTURE [None]
  - PRODUCT QUALITY ISSUE [None]
  - BLOOD GLUCOSE DECREASED [None]
